FAERS Safety Report 20500547 (Version 1)
Quarter: 2022Q1

REPORT INFORMATION
  Report Type: Report from Study
  Country: US (occurrence: US)
  Receive Date: 20220222
  Receipt Date: 20220222
  Transmission Date: 20220423
  Serious: Yes (Other)
  Sender: FDA-Public Use
  Company Number: US-CELGENE-USA-20220204339

PATIENT
  Sex: Male
  Weight: 72.640 kg

DRUGS (6)
  1. REVLIMID [Suspect]
     Active Substance: LENALIDOMIDE
     Indication: Follicular lymphoma
     Dosage: 10 MILLIGRAM
     Route: 048
     Dates: start: 202201
  2. REVLIMID [Suspect]
     Active Substance: LENALIDOMIDE
     Dosage: 5 MILLIGRAM
     Route: 048
     Dates: start: 202202
  3. METOPROLOL [Suspect]
     Active Substance: METOPROLOL
     Indication: Follicular lymphoma
     Route: 065
  4. OXYCODONE [Concomitant]
     Active Substance: OXYCODONE
     Indication: Pain
     Route: 065
  5. METHADONE [Concomitant]
     Active Substance: METHADONE HYDROCHLORIDE
     Indication: Pain
     Route: 065
  6. PROTEIN SHAKES [Concomitant]
     Indication: Product used for unknown indication
     Route: 065

REACTIONS (5)
  - Taste disorder [Unknown]
  - Dysphagia [Unknown]
  - Nausea [Unknown]
  - Pain in extremity [Unknown]
  - Hypotension [Unknown]
